FAERS Safety Report 18505306 (Version 6)
Quarter: 2021Q4

REPORT INFORMATION
  Report Type: Spontaneous
  Country: IN (occurrence: IN)
  Receive Date: 20201116
  Receipt Date: 20211004
  Transmission Date: 20220303
  Serious: Yes (Other)
  Sender: FDA-Public Use
  Company Number: IN-PFIZER INC-2020432840

PATIENT
  Age: 65 Year
  Sex: Female

DRUGS (7)
  1. PALBOCICLIB [Suspect]
     Active Substance: PALBOCICLIB
     Indication: Breast cancer metastatic
     Dosage: 100 MG, CYCLIC (1-0-0, 3 WEEKS ON X 1 WEEK OFF)
     Route: 048
     Dates: start: 20200819, end: 2020
  2. PALBOCICLIB [Suspect]
     Active Substance: PALBOCICLIB
     Dosage: 75 MG, CYCLIC (1-0-0, ONCE A DAY, X 3 WEEKS ON 1 WEEK OFF)
     Route: 048
     Dates: start: 2020
  3. PALBOCICLIB [Suspect]
     Active Substance: PALBOCICLIB
     Dosage: 125 MG, 1X/DAY
     Route: 048
  4. FEMARA [Concomitant]
     Active Substance: LETROZOLE
     Dosage: 2.5 MG, 1X/DAY (1-0-0)
     Route: 048
  5. LETROZOLE [Concomitant]
     Active Substance: LETROZOLE
     Dosage: 2.5 MG, 1X/DAY
  6. CALCIUM\CHOLECALCIFEROL [Concomitant]
     Active Substance: CALCIUM\CHOLECALCIFEROL
     Dosage: UNK, 1X/DAY
     Route: 048
  7. PROVIDAC [Concomitant]
     Dosage: UNK, 3X/DAY

REACTIONS (8)
  - Diabetes mellitus [Unknown]
  - Blood potassium increased [Unknown]
  - Hypertension [Unknown]
  - Depression [Unknown]
  - White blood cell count decreased [Unknown]
  - Weight increased [Unknown]
  - Full blood count abnormal [Unknown]
  - Hyperthermia [Unknown]

NARRATIVE: CASE EVENT DATE: 20210204
